FAERS Safety Report 12359948 (Version 1)
Quarter: 2016Q2

REPORT INFORMATION
  Report Type: Spontaneous
  Country: US (occurrence: US)
  Receive Date: 20160512
  Receipt Date: 20160512
  Transmission Date: 20160815
  Serious: Yes (Other)
  Sender: FDA-Public Use
  Company Number: US-GLAXOSMITHKLINE-US2016GSK066733

PATIENT
  Sex: Female

DRUGS (1)
  1. LAMOTRIGINE. [Suspect]
     Active Substance: LAMOTRIGINE
     Indication: SEIZURE

REACTIONS (5)
  - Therapeutic response changed [Unknown]
  - Cerebrovascular accident [Unknown]
  - Spinal fracture [Unknown]
  - Product substitution issue [Unknown]
  - Drug ineffective [Unknown]
